FAERS Safety Report 10051363 (Version 1)
Quarter: 2014Q2

REPORT INFORMATION
  Report Type: Spontaneous
  Country: US (occurrence: US)
  Receive Date: 20140401
  Receipt Date: 20140401
  Transmission Date: 20141212
  Serious: No
  Sender: FDA-Public Use
  Company Number: US-PFIZER INC-2014088805

PATIENT
  Age: 29 Year
  Sex: Male
  Weight: 139.68 kg

DRUGS (2)
  1. ADVIL [Suspect]
     Indication: HEADACHE
     Dosage: UNK, AS NEEDED
     Dates: start: 201403
  2. ADVIL [Suspect]
     Indication: PAIN

REACTIONS (2)
  - Wrong technique in drug usage process [Unknown]
  - Burning sensation [Not Recovered/Not Resolved]
